FAERS Safety Report 7349004-X (Version None)
Quarter: 2011Q1

REPORT INFORMATION
  Report Type: 
  Country: None (occurrence: None)
  Receive Date: 20110314
  Receipt Date: 20110309
  Transmission Date: 20110831
  Serious: Yes (Other)
  Sender: FDA-Public Use
  Company Number: US-AMGEN-USASP2011013672

PATIENT
  Age: 30 Year
  Sex: Male

DRUGS (2)
  1. PREDNISONE [Concomitant]
     Dosage: 5 MG, UNK
  2. NPLATE [Suspect]
     Indication: AUTOIMMUNE THROMBOCYTOPENIA
     Dosage: 83 A?G, QWK
     Dates: start: 20110222

REACTIONS (1)
  - PLATELET COUNT INCREASED [None]
